FAERS Safety Report 8236844-8 (Version None)
Quarter: 2012Q1

REPORT INFORMATION
  Report Type: 
  Country: None (occurrence: None)
  Receive Date: 20120327
  Receipt Date: 20120313
  Transmission Date: 20120608
  Serious: Yes (Hospitalization)
  Sender: FDA-Public Use
  Company Number: DE-RANBAXY-2012US-52422

PATIENT

DRUGS (12)
  1. ACETAMINOPHEN [Suspect]
     Indication: ANALGESIC THERAPY
     Dosage: UPTO 5G/DAY FOR THE FIRST FEW DAYS THEN 3-4 GRAM PER DAY
     Route: 065
     Dates: start: 20111023, end: 20111114
  2. MUCOMYST [Concomitant]
     Indication: SALIVARY HYPERSECRETION
     Dosage: 200 MG, TID
     Route: 048
     Dates: start: 20110101
  3. ARTHROTEC [Suspect]
     Indication: ANALGESIC THERAPY
     Dosage: UPTO 100 TO 150MG/DAY
     Route: 065
     Dates: start: 20111111
  4. BUPIVACAINE HCL [Concomitant]
     Indication: PRODUCT USED FOR UNKNOWN INDICATION
     Dosage: UNK
     Route: 008
     Dates: start: 20111001
  5. ZOPICLONE [Concomitant]
     Indication: INSOMNIA
     Dosage: 5-7.5 MG/DAY
     Route: 065
     Dates: start: 20111001
  6. PANTOPRAZOLE [Suspect]
     Indication: PROPHYLAXIS AGAINST GASTROINTESTINAL ULCER
     Dosage: 40 MG, 1 IN 1 DAY
     Route: 065
     Dates: start: 20111001
  7. ROPIVACAINE HYDROCHLORIDE [Concomitant]
     Indication: PRODUCT USED FOR UNKNOWN INDICATION
     Dosage: UNK
     Route: 008
     Dates: start: 20111001
  8. OXAZEPAM [Concomitant]
     Indication: INSOMNIA
     Dosage: 25 MG 1 DAY
     Route: 065
     Dates: start: 20111001
  9. CODEINE [Concomitant]
     Indication: PRODUCT USED FOR UNKNOWN INDICATION
     Dosage: 180MG/DAY (GIVEN AS COMBINATION PREP WITH ACETAMINOPHEN)
     Route: 065
     Dates: start: 20111024, end: 20111030
  10. LACTULOSE [Concomitant]
     Indication: PRODUCT USED FOR UNKNOWN INDICATION
     Dosage: 15 MG, BID
     Route: 065
  11. HALOPERIDOL [Concomitant]
     Indication: PRODUCT USED FOR UNKNOWN INDICATION
     Dosage: 1 MG, QD (IN THE EVENING)
     Route: 065
     Dates: end: 20111114
  12. OXYCODONE HCL [Concomitant]
     Indication: PRODUCT USED FOR UNKNOWN INDICATION
     Dosage: 50 MG, QD
     Route: 065

REACTIONS (1)
  - CHOLESTASIS [None]
